FAERS Safety Report 4703745-9 (Version None)
Quarter: 2005Q2

REPORT INFORMATION
  Report Type: 
  Country: None (occurrence: None)
  Receive Date: 20050628
  Receipt Date: 20050615
  Transmission Date: 20051028
  Serious: Yes (Disabling, Other)
  Sender: FDA-Public Use
  Company Number: USA050699942

PATIENT
  Age: 89 Year
  Sex: Female

DRUGS (1)
  1. EVISTA [Suspect]
     Indication: OSTEOPOROSIS
     Dates: start: 20010101, end: 20050606

REACTIONS (6)
  - BLINDNESS UNILATERAL [None]
  - CEREBROVASCULAR ACCIDENT [None]
  - DISCOMFORT [None]
  - OCULAR VASCULAR DISORDER [None]
  - OEDEMA PERIPHERAL [None]
  - RETINAL VASCULAR THROMBOSIS [None]
